FAERS Safety Report 17315760 (Version 6)
Quarter: 2021Q2

REPORT INFORMATION
  Report Type: Spontaneous
  Country: US (occurrence: US)
  Receive Date: 20200124
  Receipt Date: 20210401
  Transmission Date: 20210716
  Serious: Yes (Hospitalization, Other)
  Sender: FDA-Public Use
  Company Number: US-SA-2019SA113090

PATIENT
  Age: 45 Year
  Sex: Male
  Weight: 63.49 kg

DRUGS (10)
  1. CEREZYME [Suspect]
     Active Substance: IMIGLUCERASE
     Indication: GAUCHER^S DISEASE
     Dosage: 4000 U, QOW
     Route: 041
     Dates: start: 20180123
  2. STERILE WATER [Concomitant]
     Active Substance: WATER
  3. EPINEPHRINE. [Concomitant]
     Active Substance: EPINEPHRINE
  4. VITAMIN D2 [Concomitant]
     Active Substance: ERGOCALCIFEROL
  5. CEREZYME [Suspect]
     Active Substance: IMIGLUCERASE
     Indication: FABRY^S DISEASE
     Dosage: 4000 U, QOW
     Route: 042
     Dates: start: 20200305
  6. METAMUCIL [Concomitant]
     Active Substance: PLANTAGO SEED
  7. FISH OIL [Concomitant]
     Active Substance: FISH OIL
  8. CEREZYME [Suspect]
     Active Substance: IMIGLUCERASE
     Indication: LIPIDOSIS
     Dosage: 4000 IU, QOW
     Route: 041
     Dates: start: 20190306
  9. NORMAL SALINE [Concomitant]
     Active Substance: SODIUM CHLORIDE
  10. ATORVASTATIN [Concomitant]
     Active Substance: ATORVASTATIN

REACTIONS (10)
  - Diverticulitis [Unknown]
  - Intestinal resection [Unknown]
  - Surgery [Unknown]
  - Product dose omission issue [Unknown]
  - Procedural pain [Unknown]
  - Gastrointestinal disorder [Unknown]
  - Arthralgia [Unknown]
  - Contusion [Unknown]
  - Splenomegaly [Unknown]
  - Product use in unapproved indication [Unknown]

NARRATIVE: CASE EVENT DATE: 20180123
